FAERS Safety Report 5920876-6 (Version None)
Quarter: 2008Q4

REPORT INFORMATION
  Report Type: 
  Country: None (occurrence: None)
  Receive Date: 20081015
  Receipt Date: 20081015
  Transmission Date: 20090506
  Serious: Yes (Life-Threatening)
  Sender: FDA-Public Use
  Company Number: None

PATIENT
  Age: 46 Year
  Sex: Female
  Weight: 72.5755 kg

DRUGS (2)
  1. LITHIUM-ER 450MG [Suspect]
     Indication: BIPOLAR DISORDER
     Dosage: 450MG -2- BID PO
     Route: 048
     Dates: start: 20040601, end: 20040810
  2. XANAX-ER 1MG [Suspect]
     Indication: ANXIETY
     Dosage: 1MG BID PO
     Route: 048
     Dates: start: 20020429

REACTIONS (13)
  - AMNESIA [None]
  - BIPOLAR II DISORDER [None]
  - CONFUSIONAL STATE [None]
  - CRYING [None]
  - DIARRHOEA [None]
  - DRUG ABUSER [None]
  - DRUG TOXICITY [None]
  - FATIGUE [None]
  - PARAESTHESIA [None]
  - RASH [None]
  - TREMOR [None]
  - VISION BLURRED [None]
  - VOMITING [None]
